FAERS Safety Report 23897399 (Version 1)
Quarter: 2024Q2

REPORT INFORMATION
  Report Type: Spontaneous
  Country: US (occurrence: US)
  Receive Date: 20240524
  Receipt Date: 20240524
  Transmission Date: 20240715
  Serious: Yes (Hospitalization, Other)
  Sender: FDA-Public Use
  Company Number: US-BRISTOL-MYERS SQUIBB COMPANY-2024-080784

PATIENT
  Age: 62 Year
  Sex: Female
  Weight: 54.88 kg

DRUGS (3)
  1. ORENCIA [Suspect]
     Active Substance: ABATACEPT
     Indication: Rheumatoid arthritis
     Route: 042
     Dates: start: 2023, end: 2024
  2. ORENCIA [Suspect]
     Active Substance: ABATACEPT
  3. PREDNISONE [Suspect]
     Active Substance: PREDNISONE
     Indication: Product used for unknown indication

REACTIONS (4)
  - Hip fracture [Recovering/Resolving]
  - Hypoaesthesia [Unknown]
  - Arthralgia [Unknown]
  - Gait disturbance [Unknown]
